FAERS Safety Report 16794336 (Version 1)
Quarter: 2019Q3

REPORT INFORMATION
  Report Type: Spontaneous
  Country: US (occurrence: US)
  Receive Date: 20190720
  Receipt Date: 20190720
  Transmission Date: 20191005
  Serious: No
  Sender: FDA-Public Use
  Company Number: None

PATIENT
  Age: 43 Year
  Sex: Female

DRUGS (1)
  1. VERZENIO [Suspect]
     Active Substance: ABEMACICLIB
     Route: 048
     Dates: start: 201907

REACTIONS (6)
  - Gastrooesophageal reflux disease [None]
  - Abdominal pain [None]
  - Diarrhoea [None]
  - Dyspepsia [None]
  - Flatulence [None]
  - Burning sensation [None]

NARRATIVE: CASE EVENT DATE: 20190720
